FAERS Safety Report 17571338 (Version 1)
Quarter: 2020Q1

REPORT INFORMATION
  Report Type: Spontaneous
  Country: FR (occurrence: FR)
  Receive Date: 20200323
  Receipt Date: 20200323
  Transmission Date: 20200409
  Serious: Yes (Other)
  Sender: FDA-Public Use
  Company Number: FR-PFIZER INC-2020119875

PATIENT
  Age: 61 Year
  Sex: Female
  Weight: 85 kg

DRUGS (2)
  1. ZAVEDOS [Suspect]
     Active Substance: IDARUBICIN
     Indication: CHLOROMA
     Dosage: UNK
     Route: 041
     Dates: start: 20200121, end: 20200123
  2. CYTARABINE SANDOZ [Suspect]
     Active Substance: CYTARABINE
     Indication: CHLOROMA
     Dosage: UNK
     Route: 041
     Dates: start: 20200121, end: 20200129

REACTIONS (1)
  - Toxic skin eruption [Recovered/Resolved]

NARRATIVE: CASE EVENT DATE: 20200124
